FAERS Safety Report 5464808-6 (Version None)
Quarter: 2007Q3

REPORT INFORMATION
  Report Type: 
  Country: None (occurrence: None)
  Receive Date: 20070921
  Receipt Date: 20070911
  Transmission Date: 20080115
  Serious: Yes (Life-Threatening, Hospitalization)
  Sender: FDA-Public Use
  Company Number: US-PFIZER INC-2007075922

PATIENT
  Age: 51 Year
  Sex: Male

DRUGS (2)
  1. LITHIUM [Suspect]
     Dosage: TEXT:900 OR 1200 MG
  2. DILTIAZEM HYDROCHLORIDE [Interacting]

REACTIONS (2)
  - DRUG INTERACTION [None]
  - DRUG TOXICITY [None]
